FAERS Safety Report 25024503 (Version 1)
Quarter: 2025Q1

REPORT INFORMATION
  Report Type: Spontaneous
  Country: PL (occurrence: PL)
  Receive Date: 20250228
  Receipt Date: 20250228
  Transmission Date: 20250409
  Serious: Yes (Other)
  Sender: PFIZER
  Company Number: None

PATIENT
  Age: 54 Year
  Sex: Female

DRUGS (8)
  1. SULFASALAZINE [Suspect]
     Active Substance: SULFASALAZINE
     Indication: Crohn^s disease
     Dosage: 1500 MG, 2X/DAY (DOSAGE: 3X2)
     Route: 048
     Dates: start: 20210827, end: 20210913
  2. SULFASALAZINE [Suspect]
     Active Substance: SULFASALAZINE
     Indication: Malnutrition
  3. SOLU-MEDROL [Concomitant]
     Active Substance: METHYLPREDNISOLONE SODIUM SUCCINATE
     Indication: Crohn^s disease
     Route: 042
     Dates: start: 20210827, end: 20210913
  4. SOLU-MEDROL [Concomitant]
     Active Substance: METHYLPREDNISOLONE SODIUM SUCCINATE
     Indication: Malnutrition
  5. CERNEVIT [Concomitant]
     Active Substance: VITAMINS
     Indication: Crohn^s disease
     Route: 042
     Dates: start: 20210827, end: 20210913
  6. CERNEVIT [Concomitant]
     Active Substance: VITAMINS
     Indication: Malnutrition
  7. CALCIUM CARBONATE [Concomitant]
     Active Substance: CALCIUM CARBONATE
     Indication: Crohn^s disease
     Route: 048
     Dates: start: 20210827, end: 20210913
  8. CALCIUM CARBONATE [Concomitant]
     Active Substance: CALCIUM CARBONATE
     Indication: Malnutrition

REACTIONS (3)
  - Red blood cell count decreased [Unknown]
  - Haemoglobin decreased [Unknown]
  - Haematocrit decreased [Unknown]

NARRATIVE: CASE EVENT DATE: 20210831
